FAERS Safety Report 19376293 (Version 2)
Quarter: 2021Q2

REPORT INFORMATION
  Report Type: Report from Study
  Country: None (occurrence: US)
  Receive Date: 20210605
  Receipt Date: 20210612
  Transmission Date: 20210717
  Serious: Yes (Other)
  Sender: FDA-Public Use
  Company Number: US-ABBVIE-21K-163-3926406-00

PATIENT
  Age: 73 Year
  Sex: Female
  Weight: 53.48 kg

DRUGS (17)
  1. TIMOLOL. [Concomitant]
     Active Substance: TIMOLOL
     Indication: UVEITIS
  2. AMLODIPINE [Concomitant]
     Active Substance: AMLODIPINE BESYLATE
     Indication: HYPERTENSION
  3. HUMIRA [Suspect]
     Active Substance: ADALIMUMAB
     Indication: UVEITIS
     Route: 058
     Dates: start: 201901, end: 202001
  4. AZOPT [Concomitant]
     Active Substance: BRINZOLAMIDE
     Indication: GLAUCOMA
  5. ILEVRO [Concomitant]
     Active Substance: NEPAFENAC
     Indication: UVEITIS
  6. HUMIRA [Suspect]
     Active Substance: ADALIMUMAB
     Route: 058
     Dates: start: 20210602
  7. COVID?19 VACCINE [Concomitant]
     Dosage: PFIZER
     Route: 030
     Dates: start: 20210227, end: 20210227
  8. HUMIRA [Suspect]
     Active Substance: ADALIMUMAB
     Route: 058
     Dates: start: 202001, end: 20200508
  9. ALPHAGAN P [Concomitant]
     Active Substance: BRIMONIDINE TARTRATE
     Indication: GLAUCOMA
  10. HUMIRA [Suspect]
     Active Substance: ADALIMUMAB
     Route: 058
     Dates: start: 20200527, end: 20201223
  11. HUMIRA [Suspect]
     Active Substance: ADALIMUMAB
     Route: 058
     Dates: start: 20210113, end: 20210519
  12. TIMOLOL. [Concomitant]
     Active Substance: TIMOLOL
     Indication: GLAUCOMA
  13. ROSUVASTATIN. [Concomitant]
     Active Substance: ROSUVASTATIN
     Indication: BLOOD CHOLESTEROL INCREASED
  14. LATANOPROST. [Concomitant]
     Active Substance: LATANOPROST
     Indication: GLAUCOMA
  15. PRED [Concomitant]
     Active Substance: PREDNISONE
     Indication: UVEITIS
  16. CLOBESOL [Suspect]
     Active Substance: CLOBETASOL PROPIONATE
     Indication: PRODUCT USED FOR UNKNOWN INDICATION
     Route: 065
  17. COVID?19 VACCINE [Concomitant]
     Indication: COVID-19 IMMUNISATION
     Dosage: PFIZER
     Route: 030
     Dates: start: 20210206, end: 20210206

REACTIONS (15)
  - Gingivitis [Recovered/Resolved]
  - Gingivitis [Recovered/Resolved]
  - Furuncle [Unknown]
  - Acne [Unknown]
  - Post procedural infection [Unknown]
  - Gingivitis [Not Recovered/Not Resolved]
  - Toothache [Recovered/Resolved]
  - Skin discolouration [Unknown]
  - Eye inflammation [Recovering/Resolving]
  - Eczema [Unknown]
  - Medical device implantation [Unknown]
  - Gingival abscess [Recovering/Resolving]
  - Medical device implantation [Unknown]
  - Infection [Unknown]
  - Post procedural infection [Unknown]

NARRATIVE: CASE EVENT DATE: 2019
